FAERS Safety Report 4724853-2 (Version None)
Quarter: 2005Q3

REPORT INFORMATION
  Report Type: 
  Country: None (occurrence: None)
  Receive Date: 20050726
  Receipt Date: 20050602
  Transmission Date: 20060218
  Serious: Yes (Other)
  Sender: FDA-Public Use
  Company Number: PHFR2005GB02031

PATIENT
  Age: 65 Year
  Sex: Male

DRUGS (4)
  1. GLEEVEC [Suspect]
     Indication: CHRONIC MYELOID LEUKAEMIA
     Dosage: 400 MG, QD
     Route: 048
     Dates: start: 20050301, end: 20050524
  2. BENDROFLUAZIDE [Concomitant]
     Indication: HYPERTENSION
     Dosage: 2.5MG/DAY
     Route: 048
     Dates: start: 20050401
  3. CANDESARTAN [Concomitant]
     Indication: HYPERTENSION
     Dosage: 8MG/DAY
     Route: 048
     Dates: start: 20040201
  4. ASPIRIN [Concomitant]
     Indication: TRANSIENT ISCHAEMIC ATTACK
     Dosage: 150MG/DAY
     Route: 048
     Dates: start: 20040201

REACTIONS (6)
  - ALANINE AMINOTRANSFERASE INCREASED [None]
  - BLOOD ALKALINE PHOSPHATASE INCREASED [None]
  - BLOOD BILIRUBIN INCREASED [None]
  - DYSGEUSIA [None]
  - HEPATITIS [None]
  - MALAISE [None]
